FAERS Safety Report 24158776 (Version 2)
Quarter: 2024Q3

REPORT INFORMATION
  Report Type: Spontaneous
  Country: US (occurrence: US)
  Receive Date: 20240731
  Receipt Date: 20240802
  Transmission Date: 20241017
  Serious: No
  Sender: BIOMARIN
  Company Number: US-BIOMARINAP-US-2024-159456

PATIENT

DRUGS (1)
  1. PALYNZIQ [Suspect]
     Active Substance: PEGVALIASE-PQPZ
     Indication: Product used for unknown indication
     Dosage: ,
     Route: 058

REACTIONS (9)
  - Pain [Unknown]
  - Chills [Unknown]
  - Asthenia [Unknown]
  - Peripheral swelling [Unknown]
  - Headache [Unknown]
  - Injection site swelling [Unknown]
  - Injection site pruritus [Unknown]
  - Pruritus [Unknown]
  - Joint swelling [Unknown]
